FAERS Safety Report 19982340 (Version 2)
Quarter: 2022Q1

REPORT INFORMATION
  Report Type: Spontaneous
  Country: BR (occurrence: None)
  Receive Date: 20211022
  Receipt Date: 20220126
  Transmission Date: 20220424
  Serious: Yes (Other)
  Sender: FDA-Public Use
  Company Number: 2021A777907

PATIENT
  Sex: Male

DRUGS (2)
  1. ASTRAZENECA COVID-19 VACCINE [Suspect]
     Active Substance: AZD-1222
     Dosage: ONCE/SINGLE ADMINISTRATION
     Route: 030
  2. SYMBICORT [Suspect]
     Active Substance: BUDESONIDE\FORMOTEROL FUMARATE DIHYDRATE
     Dosage: 160/4.5 MCG, 2 JETS IN THE MORNING AND 2 JETS AT NIGHT
     Route: 055
     Dates: start: 20210831

REACTIONS (8)
  - COVID-19 [Unknown]
  - Pain [Unknown]
  - Asthenia [Unknown]
  - Headache [Unknown]
  - Fatigue [Not Recovered/Not Resolved]
  - Product administration error [Unknown]
  - Therapeutic product ineffective [Not Recovered/Not Resolved]
  - Drug delivery system issue [Unknown]
